FAERS Safety Report 23334350 (Version 1)
Quarter: 2023Q4

REPORT INFORMATION
  Report Type: Report from Study
  Country: CA (occurrence: CA)
  Receive Date: 20231223
  Receipt Date: 20231223
  Transmission Date: 20240110
  Serious: Yes (Other)
  Sender: FDA-Public Use
  Company Number: CA-HLS-202302875

PATIENT
  Sex: Female

DRUGS (1)
  1. CLOZARIL [Suspect]
     Active Substance: CLOZAPINE
     Indication: Product used for unknown indication
     Dosage: MRP AWARE WITH PLAN TO RESTART AT 50MG PO QHS
     Route: 048
     Dates: start: 20120719

REACTIONS (1)
  - Unresponsive to stimuli [Unknown]
